FAERS Safety Report 17913656 (Version 1)
Quarter: 2020Q2

REPORT INFORMATION
  Report Type: Spontaneous
  Country: DE (occurrence: DE)
  Receive Date: 20200618
  Receipt Date: 20200618
  Transmission Date: 20200714
  Serious: Yes (Life-Threatening, Hospitalization)
  Sender: FDA-Public Use
  Company Number: DE-MYLANLABS-2020M1057730

PATIENT
  Age: 89 Year
  Sex: Female

DRUGS (9)
  1. DIGIMERCK [Suspect]
     Active Substance: DIGITOXIN
     Indication: PRODUCT USED FOR UNKNOWN INDICATION
     Dosage: 0.07 MILLIGRAM, QD (0.07 MG, 1-0-0-0)
     Route: 048
  2. MAGNESIUM DIASPORAL                /00434501/ [Concomitant]
     Dosage: 100 MILLIGRAM (100 MG, BEI BEDARF)
  3. XARELTO [Concomitant]
     Active Substance: RIVAROXABAN
     Dosage: 15 MILLIGRAM, QD (15 MG, 1-0-0-0)
     Route: 048
  4. METOPROLOL. [Concomitant]
     Active Substance: METOPROLOL
     Dosage: 95 MILLIGRAM (95 MG, 0.5-0-0.5-0)
     Route: 048
  5. AMLODIPIN                          /00972401/ [Concomitant]
     Active Substance: AMLODIPINE BESYLATE
     Dosage: 5 MILLIGRAM (5 MG, 2-0-1-0)
     Route: 048
  6. TORASEMIDE [Suspect]
     Active Substance: TORSEMIDE
     Indication: PRODUCT USED FOR UNKNOWN INDICATION
     Dosage: 10 MILLIGRAM, BID (10 MG, 1-1-0-0)
     Route: 048
  7. INSULIN GLARGINE [Concomitant]
     Active Substance: INSULIN GLARGINE
     Dosage: UNK (10-0-0-16)
     Route: 058
  8. LEVOTHYROXINE SODIUM. [Concomitant]
     Active Substance: LEVOTHYROXINE SODIUM
     Dosage: 0.5 MILLIGRAM, QD (0.5 MG, 1-0-0-0)
     Route: 048
  9. CANDESARTAN. [Concomitant]
     Active Substance: CANDESARTAN
     Dosage: 8 MILLIGRAM (8 MG, 2-0-1-0)
     Route: 048

REACTIONS (3)
  - Dyspnoea [Unknown]
  - Product administration error [Unknown]
  - Product prescribing error [Unknown]

NARRATIVE: CASE EVENT DATE: 20200325
